FAERS Safety Report 5358868-0 (Version None)
Quarter: 2007Q2

REPORT INFORMATION
  Report Type: 
  Country: None (occurrence: None)
  Receive Date: 20070615
  Receipt Date: 20070604
  Transmission Date: 20071010
  Serious: Yes (Death, Life-Threatening, Hospitalization)
  Sender: FDA-Public Use
  Company Number: HQWYE050528AUG06

PATIENT
  Sex: Male

DRUGS (5)
  1. TEMSIROLIMUS [Suspect]
     Indication: MANTLE CELL LYMPHOMA
     Route: 042
     Dates: start: 20060511, end: 20060706
  2. PARACETAMOL [Concomitant]
     Indication: PAIN
     Dosage: 1 GR DAILY DOSE
     Route: 048
     Dates: start: 20060805, end: 20060824
  3. OMEPRAZOLE [Concomitant]
     Indication: PROPHYLAXIS
     Route: 048
     Dates: start: 20060718, end: 20060824
  4. MEGESTROL ACETATE [Concomitant]
     Indication: WEIGHT DECREASED
     Dosage: 40 MG DAILY DOSE
     Route: 048
     Dates: start: 20060713, end: 20060824
  5. MEGESTROL ACETATE [Concomitant]
     Indication: ANOREXIA

REACTIONS (2)
  - ABDOMINAL SEPSIS [None]
  - PNEUMONIA [None]
